FAERS Safety Report 7057339-3 (Version None)
Quarter: 2010Q4

REPORT INFORMATION
  Report Type: 
  Country: None (occurrence: None)
  Receive Date: 20101022
  Receipt Date: 20101008
  Transmission Date: 20110411
  Serious: Yes (Hospitalization)
  Sender: FDA-Public Use
  Company Number: US-PERRIGO-10US013812

PATIENT
  Age: 13 Year
  Sex: Female

DRUGS (4)
  1. MESALAMINE [Suspect]
     Indication: CROHN'S DISEASE
     Route: 065
  2. MERCAPTOPURINE [Suspect]
     Indication: CROHN'S DISEASE
     Dosage: 1 MG/KG, QD
     Route: 065
  3. BUDESONIDE [Concomitant]
     Indication: CROHN'S DISEASE
     Route: 065
  4. OMEPRAZOLE [Concomitant]
     Indication: CROHN'S DISEASE
     Route: 065

REACTIONS (6)
  - ALOPECIA [None]
  - DIZZINESS [None]
  - ESCHERICHIA SEPSIS [None]
  - FATIGUE [None]
  - PANCYTOPENIA [None]
  - PYREXIA [None]
